FAERS Safety Report 11243589 (Version 1)
Quarter: 2015Q3

REPORT INFORMATION
  Report Type: Spontaneous
  Country: US (occurrence: US)
  Receive Date: 20150707
  Receipt Date: 20150707
  Transmission Date: 20151125
  Serious: Yes (Other)
  Sender: FDA-Public Use
  Company Number: US-JNJFOC-20150622503

PATIENT
  Sex: Female
  Weight: 104.33 kg

DRUGS (5)
  1. DIGOXIN. [Concomitant]
     Active Substance: DIGOXIN
     Indication: CARDIAC FAILURE
     Route: 048
     Dates: start: 201505
  2. XARELTO [Suspect]
     Active Substance: RIVAROXABAN
     Indication: CEREBROVASCULAR ACCIDENT PROPHYLAXIS
     Route: 048
     Dates: start: 20131028
  3. ETHACRYNIC ACID [Concomitant]
     Active Substance: ETHACRYNIC ACID
     Indication: DIURETIC THERAPY
     Route: 048
     Dates: start: 2014
  4. METOPROLOL [Concomitant]
     Active Substance: METOPROLOL
     Indication: HYPERTENSION
     Route: 048
     Dates: start: 2010
  5. XARELTO [Suspect]
     Active Substance: RIVAROXABAN
     Indication: ATRIAL FIBRILLATION
     Route: 048
     Dates: start: 20131028

REACTIONS (10)
  - Oedema [Not Recovered/Not Resolved]
  - Tremor [Not Recovered/Not Resolved]
  - Faecal incontinence [Not Recovered/Not Resolved]
  - Paraesthesia [Not Recovered/Not Resolved]
  - Alopecia [Not Recovered/Not Resolved]
  - Muscular weakness [Not Recovered/Not Resolved]
  - Intercepted medication error [Unknown]
  - Pollakiuria [Not Recovered/Not Resolved]
  - Weight increased [Not Recovered/Not Resolved]
  - Intervertebral disc disorder [Not Recovered/Not Resolved]

NARRATIVE: CASE EVENT DATE: 2013
